FAERS Safety Report 22040901 (Version 2)
Quarter: 2023Q1

REPORT INFORMATION
  Report Type: Spontaneous
  Country: IE (occurrence: IE)
  Receive Date: 20230227
  Receipt Date: 20230314
  Transmission Date: 20230418
  Serious: Yes (Hospitalization, Other)
  Sender: FDA-Public Use
  Company Number: IE-MYLANLABS-2023M1020219

PATIENT
  Sex: Female

DRUGS (2)
  1. CLOZARIL [Suspect]
     Active Substance: CLOZAPINE
     Indication: Schizophrenia
     Dosage: UNK
     Route: 048
     Dates: start: 20230203, end: 20230220
  2. CLOZARIL [Suspect]
     Active Substance: CLOZAPINE
     Dosage: UNK
     Route: 048
     Dates: end: 20230222

REACTIONS (6)
  - Malaise [Unknown]
  - Infection [Unknown]
  - Myocarditis [Unknown]
  - C-reactive protein increased [Unknown]
  - Troponin increased [Unknown]
  - Platelet count increased [Recovered/Resolved]

NARRATIVE: CASE EVENT DATE: 20230227
